FAERS Safety Report 6899703-9 (Version None)
Quarter: 2010Q3

REPORT INFORMATION
  Report Type: 
  Country: None (occurrence: None)
  Receive Date: 20100803
  Receipt Date: 20100712
  Transmission Date: 20110219
  Serious: Yes (Hospitalization, Other)
  Sender: FDA-Public Use
  Company Number: US-PFIZER INC-2008008332

PATIENT
  Sex: Female
  Weight: 77.272 kg

DRUGS (6)
  1. CHANTIX [Suspect]
     Indication: SMOKING CESSATION THERAPY
     Dosage: 0.5MG/1MG
     Dates: start: 20070322, end: 20070402
  2. LIPITOR [Concomitant]
     Indication: BLOOD CHOLESTEROL
     Dosage: UNK
     Dates: start: 19981101
  3. AMBIEN [Concomitant]
  4. ESTRADIOL [Concomitant]
     Dosage: UNK
     Dates: start: 20060101, end: 20090101
  5. TRIAVIL [Concomitant]
     Indication: DEPRESSION
     Dosage: UNK
     Dates: start: 20010101
  6. DIHYDROERGOTAMINE MESILATE [Concomitant]
     Indication: MIGRAINE
     Dosage: UNK
     Dates: start: 20040101

REACTIONS (5)
  - ANXIETY [None]
  - DEPRESSION [None]
  - HEADACHE [None]
  - INSOMNIA [None]
  - SUICIDAL IDEATION [None]
